FAERS Safety Report 25548544 (Version 1)
Quarter: 2025Q3

REPORT INFORMATION
  Report Type: Spontaneous
  Country: GB (occurrence: GB)
  Receive Date: 20250714
  Receipt Date: 20250714
  Transmission Date: 20251021
  Serious: Yes (Other)
  Sender: MYLAN
  Company Number: None

PATIENT
  Age: 87 Year
  Sex: Female

DRUGS (36)
  1. COLCHICINE [Suspect]
     Active Substance: COLCHICINE
     Indication: Gout
     Dosage: 500 MICROGRAM, QID (500MICROGRAMS QDS)
     Dates: start: 2024, end: 20250705
  2. COLCHICINE [Suspect]
     Active Substance: COLCHICINE
     Dosage: 500 MICROGRAM, QID (500MICROGRAMS QDS)
     Route: 065
     Dates: start: 2024, end: 20250705
  3. COLCHICINE [Suspect]
     Active Substance: COLCHICINE
     Dosage: 500 MICROGRAM, QID (500MICROGRAMS QDS)
     Route: 065
     Dates: start: 2024, end: 20250705
  4. COLCHICINE [Suspect]
     Active Substance: COLCHICINE
     Dosage: 500 MICROGRAM, QID (500MICROGRAMS QDS)
     Dates: start: 2024, end: 20250705
  5. OMEPRAZOLE [Concomitant]
     Active Substance: OMEPRAZOLE
     Indication: Antacid therapy
  6. OMEPRAZOLE [Concomitant]
     Active Substance: OMEPRAZOLE
     Indication: Gastrointestinal disorder prophylaxis
     Route: 065
  7. OMEPRAZOLE [Concomitant]
     Active Substance: OMEPRAZOLE
     Route: 065
  8. OMEPRAZOLE [Concomitant]
     Active Substance: OMEPRAZOLE
  9. PREGABALIN [Concomitant]
     Active Substance: PREGABALIN
     Indication: Pain
  10. PREGABALIN [Concomitant]
     Active Substance: PREGABALIN
     Route: 065
  11. PREGABALIN [Concomitant]
     Active Substance: PREGABALIN
     Route: 065
  12. PREGABALIN [Concomitant]
     Active Substance: PREGABALIN
  13. FUROSEMIDE [Concomitant]
     Active Substance: FUROSEMIDE
     Indication: Oedema
  14. FUROSEMIDE [Concomitant]
     Active Substance: FUROSEMIDE
     Route: 065
  15. FUROSEMIDE [Concomitant]
     Active Substance: FUROSEMIDE
     Route: 065
  16. FUROSEMIDE [Concomitant]
     Active Substance: FUROSEMIDE
  17. MORPHINE SULFATE [Concomitant]
     Active Substance: MORPHINE SULFATE
     Indication: Pain
  18. MORPHINE SULFATE [Concomitant]
     Active Substance: MORPHINE SULFATE
     Route: 065
  19. MORPHINE SULFATE [Concomitant]
     Active Substance: MORPHINE SULFATE
     Route: 065
  20. MORPHINE SULFATE [Concomitant]
     Active Substance: MORPHINE SULFATE
  21. TRANEXAMIC ACID [Concomitant]
     Active Substance: TRANEXAMIC ACID
     Indication: Haemorrhage
  22. TRANEXAMIC ACID [Concomitant]
     Active Substance: TRANEXAMIC ACID
     Route: 065
  23. TRANEXAMIC ACID [Concomitant]
     Active Substance: TRANEXAMIC ACID
     Route: 065
  24. TRANEXAMIC ACID [Concomitant]
     Active Substance: TRANEXAMIC ACID
  25. ACETAMINOPHEN [Concomitant]
     Active Substance: ACETAMINOPHEN
     Indication: Pain
  26. ACETAMINOPHEN [Concomitant]
     Active Substance: ACETAMINOPHEN
     Route: 065
  27. ACETAMINOPHEN [Concomitant]
     Active Substance: ACETAMINOPHEN
     Route: 065
  28. ACETAMINOPHEN [Concomitant]
     Active Substance: ACETAMINOPHEN
  29. MORPHINE [Concomitant]
     Active Substance: MORPHINE
  30. MORPHINE [Concomitant]
     Active Substance: MORPHINE
     Route: 065
  31. MORPHINE [Concomitant]
     Active Substance: MORPHINE
     Route: 065
  32. MORPHINE [Concomitant]
     Active Substance: MORPHINE
  33. FLECAINIDE [Concomitant]
     Active Substance: FLECAINIDE
  34. FLECAINIDE [Concomitant]
     Active Substance: FLECAINIDE
     Route: 065
  35. FLECAINIDE [Concomitant]
     Active Substance: FLECAINIDE
     Route: 065
  36. FLECAINIDE [Concomitant]
     Active Substance: FLECAINIDE

REACTIONS (1)
  - Confusional state [Recovered/Resolved]

NARRATIVE: CASE EVENT DATE: 20250704
